FAERS Safety Report 8593790-8 (Version None)
Quarter: 2012Q3

REPORT INFORMATION
  Report Type: 
  Country: None (occurrence: None)
  Receive Date: 20120814
  Receipt Date: 20120727
  Transmission Date: 20120928
  Serious: Yes (Other)
  Sender: FDA-Public Use
  Company Number: PL-BAXTER-2012BAX013005

PATIENT
  Age: 38 Year
  Sex: Female

DRUGS (1)
  1. THEOPHYLLINUM BAXTER [Suspect]
     Route: 042
     Dates: start: 20120726, end: 20120726

REACTIONS (3)
  - DYSPNOEA [None]
  - FEELING ABNORMAL [None]
  - MATERNAL EXPOSURE DURING PREGNANCY [None]
